FAERS Safety Report 21988398 (Version 1)
Quarter: 2023Q1

REPORT INFORMATION
  Report Type: Spontaneous
  Country: US (occurrence: US)
  Receive Date: 20230214
  Receipt Date: 20230214
  Transmission Date: 20230417
  Serious: Yes (Life-Threatening, Hospitalization, Other)
  Sender: FDA-Public Use
  Company Number: US-LUPIN PHARMACEUTICALS INC.-2023-00979

PATIENT
  Age: 17 Year
  Sex: Female

DRUGS (1)
  1. HYDROXYCHLOROQUINE [Suspect]
     Active Substance: HYDROXYCHLOROQUINE
     Indication: Product used for unknown indication
     Dosage: 20 GRAM, UNK
     Route: 048

REACTIONS (5)
  - Cardiac arrest [Recovered/Resolved]
  - Distributive shock [Recovered/Resolved]
  - Peripheral ischaemia [Recovered/Resolved]
  - Intentional overdose [Unknown]
  - Ventricular tachycardia [Recovered/Resolved]
